FAERS Safety Report 9516091 (Version 1)
Quarter: 2013Q1

REPORT INFORMATION
  Report Type: Spontaneous
  Country: US (occurrence: None)
  Receive Date: 20130305
  Receipt Date: 20130305
  Transmission Date: 20140127
  Serious: Yes (Other)
  Sender: FDA-Public Use
  Company Number: 163-21880-12120132

PATIENT
  Age: 52 Year
  Sex: Female

DRUGS (1)
  1. REVLIMID (LENALIDOMIDE) (CAPSULES) [Suspect]
     Indication: MONOCLONAL GAMMOPATHY
     Dosage: 18.75 MG,  3 WEEKS ON AND 1 WEEK OFF,  PO
     Route: 048
     Dates: start: 20120409

REACTIONS (1)
  - Sinusitis [None]
